FAERS Safety Report 6209331-6 (Version None)
Quarter: 2009Q2

REPORT INFORMATION
  Report Type: 
  Country: None (occurrence: None)
  Receive Date: 20090529
  Receipt Date: 20090514
  Transmission Date: 20091009
  Serious: Yes (Other)
  Sender: FDA-Public Use
  Company Number: CN-GENENTECH-283015

PATIENT
  Age: 14 Year

DRUGS (1)
  1. MABTHERA [Suspect]
     Indication: DIFFUSE LARGE B-CELL LYMPHOMA
     Dosage: 375 MG/M2, X1
     Route: 041
     Dates: start: 20080501, end: 20080501

REACTIONS (2)
  - ANGIOEDEMA [None]
  - VASCULAR INJURY [None]
